FAERS Safety Report 7881570-8 (Version None)
Quarter: 2011Q4

REPORT INFORMATION
  Report Type: 
  Country: None (occurrence: None)
  Receive Date: 20111101
  Receipt Date: 20110601
  Transmission Date: 20120403
  Serious: Yes (Hospitalization, Other)
  Sender: FDA-Public Use
  Company Number: US-AMGEN-USASP2011026224

PATIENT
  Age: 61 Year
  Sex: Female
  Weight: 132.43 kg

DRUGS (1)
  1. ENBREL [Suspect]
     Indication: RHEUMATOID ARTHRITIS
     Dosage: 50 MG, QWK
     Route: 058
     Dates: start: 20110413, end: 20110428

REACTIONS (4)
  - LIP SWELLING [None]
  - RASH MACULAR [None]
  - URTICARIA [None]
  - ANAPHYLACTIC REACTION [None]
